FAERS Safety Report 6499918-8 (Version None)
Quarter: 2009Q4

REPORT INFORMATION
  Report Type: 
  Country: None (occurrence: None)
  Receive Date: 20091214
  Receipt Date: 20091214
  Transmission Date: 20100525
  Serious: Yes (Death)
  Sender: FDA-Public Use
  Company Number: None

PATIENT
  Age: 78 Year
  Sex: Male
  Weight: 72.5755 kg

DRUGS (2)
  1. AMIODARONE HCL [Suspect]
     Indication: ATRIAL FIBRILLATION
     Dosage: 200 MG 1 TABLET DAILY
     Dates: start: 20070401, end: 20090414
  2. METHOTREXATE [Concomitant]

REACTIONS (9)
  - ARRHYTHMIA [None]
  - ATRIAL FIBRILLATION [None]
  - CARDIAC FAILURE CONGESTIVE [None]
  - DRUG TOXICITY [None]
  - HYPERTHYROIDISM [None]
  - LUNG DISORDER [None]
  - MULTIPLE ALLERGIES [None]
  - PULMONARY OEDEMA [None]
  - THYROTOXIC CRISIS [None]
